FAERS Safety Report 6801152-6 (Version None)
Quarter: 2010Q2

REPORT INFORMATION
  Report Type: 
  Country: None (occurrence: None)
  Receive Date: 20100629
  Receipt Date: 20100617
  Transmission Date: 20101027
  Serious: Yes (Other)
  Sender: FDA-Public Use
  Company Number: US-PFIZER INC-2010076657

PATIENT
  Sex: Female
  Weight: 129.25 kg

DRUGS (3)
  1. LYRICA [Suspect]
     Indication: FIBROMYALGIA
     Dosage: 50 MG, 2X/DAY
     Route: 048
     Dates: start: 20070101, end: 20070101
  2. ULTRAM [Concomitant]
     Dosage: UNK
  3. MOBIC [Concomitant]
     Dosage: UNK

REACTIONS (5)
  - DRUG HYPERSENSITIVITY [None]
  - DRUG INEFFECTIVE [None]
  - RESPIRATORY ARREST [None]
  - SWOLLEN TONGUE [None]
  - URTICARIA [None]
